FAERS Safety Report 22114074 (Version 1)
Quarter: 2023Q1

REPORT INFORMATION
  Report Type: Spontaneous
  Country: US (occurrence: None)
  Receive Date: 20230317
  Receipt Date: 20230317
  Transmission Date: 20230418
  Serious: Yes (Hospitalization)
  Sender: FDA-Public Use
  Company Number: None

PATIENT
  Age: 3 Year
  Sex: Female
  Weight: 14.1 kg

DRUGS (4)
  1. ASPARLAS [Suspect]
     Active Substance: CALASPARGASE PEGOL-MKNL
     Indication: B-cell type acute leukaemia
     Dosage: FREQUENCY : ONCE;?
     Route: 042
     Dates: start: 20230207, end: 20230207
  2. VINCRISTINE [Concomitant]
     Active Substance: VINCRISTINE
     Dates: start: 20230202, end: 20230216
  3. DEXAMETHASONE [Concomitant]
     Active Substance: DEXAMETHASONE
     Dates: start: 20230202, end: 20230225
  4. METHOTREXATE [Concomitant]
     Active Substance: METHOTREXATE
     Dates: start: 20230209, end: 20230216

REACTIONS (4)
  - Hepatosplenomegaly [None]
  - Therapy interrupted [None]
  - Hepatitis viral [None]
  - Hepatocellular injury [None]

NARRATIVE: CASE EVENT DATE: 20230222
